FAERS Safety Report 16894372 (Version 2)
Quarter: 2019Q4

REPORT INFORMATION
  Report Type: Spontaneous
  Country: DE (occurrence: DE)
  Receive Date: 20191008
  Receipt Date: 20191010
  Transmission Date: 20200122
  Serious: No
  Sender: FDA-Public Use
  Company Number: DE-ASTRAZENECA-2019SF41738

PATIENT
  Weight: 100 kg

DRUGS (1)
  1. SYMBICORT [Suspect]
     Active Substance: BUDESONIDE\FORMOTEROL FUMARATE DIHYDRATE
     Dosage: 160.0 / 4.5 MICROGRAMS, DAILY IN THE MORNING AND IN THE EVENING
     Route: 055

REACTIONS (1)
  - Hypoaesthesia oral [Unknown]
